FAERS Safety Report 21586462 (Version 2)
Quarter: 2023Q1

REPORT INFORMATION
  Report Type: Spontaneous
  Country: LU (occurrence: LU)
  Receive Date: 20221112
  Receipt Date: 20230124
  Transmission Date: 20230418
  Serious: Yes (Hospitalization, Disabling)
  Sender: FDA-Public Use
  Company Number: LU-AMGEN-LUXSP2022190334

PATIENT
  Age: 37 Year
  Sex: Male
  Weight: 72.7 kg

DRUGS (7)
  1. VECTIBIX [Suspect]
     Active Substance: PANITUMUMAB
     Indication: Rectosigmoid cancer
     Dosage: 438 MILLIGRAM, CYCLICAL
     Route: 040
     Dates: start: 20221019, end: 20221019
  2. PANITUMUMAB [Concomitant]
     Active Substance: PANITUMUMAB
     Dosage: UNK
     Route: 040
     Dates: start: 20221007
  3. OXALIPLATIN [Suspect]
     Active Substance: OXALIPLATIN
     Indication: Rectosigmoid cancer
     Dosage: 163.23 MILLIGRAM
     Route: 040
     Dates: start: 20221019, end: 20221019
  4. ONDANSETRON [Concomitant]
     Active Substance: ONDANSETRON
     Indication: Premedication
     Dosage: 8 MILLIGRAM
     Route: 040
     Dates: start: 20221019, end: 20221019
  5. DEXAMETHASONE [Concomitant]
     Active Substance: DEXAMETHASONE
     Indication: Premedication
     Dosage: 8 MILLIGRAM
     Route: 040
     Dates: start: 20221019, end: 20221019
  6. LEUCOVORIN [Concomitant]
     Active Substance: LEUCOVORIN
     Indication: Premedication
     Dosage: 200 MILLIGRAM
     Route: 040
     Dates: start: 20221019, end: 20221019
  7. POLARAMINE [Concomitant]
     Active Substance: DEXCHLORPHENIRAMINE MALEATE
     Indication: Premedication
     Dosage: 5 MILLIGRAM
     Route: 040
     Dates: start: 20221019, end: 20221019

REACTIONS (2)
  - Burning sensation [Recovered/Resolved]
  - Dyspnoea [Recovering/Resolving]

NARRATIVE: CASE EVENT DATE: 20221019
